FAERS Safety Report 9880563 (Version 2)
Quarter: 2014Q2

REPORT INFORMATION
  Report Type: Spontaneous
  Country: FR (occurrence: None)
  Receive Date: 20140205
  Receipt Date: 20140405
  Transmission Date: 20141212
  Serious: Yes (Hospitalization)
  Sender: FDA-Public Use
  Company Number: FR-20140025

PATIENT
  Age: 37 Year
  Sex: Male

DRUGS (2)
  1. DOTAREM (GADOTERIC ACID) [Suspect]
     Indication: NUCLEAR MAGNETIC RESONANCE IMAGING LIVER
     Dosage: UNK (1 IN 1 D) INTRAVENOUS (NOT OTHERWISE SPECIFIED)?
     Route: 042
     Dates: start: 20130225, end: 20130225
  2. BACTRIM [Suspect]
     Indication: PRODUCT USED FOR UNKNOWN INDICATION
     Dosage: 12 DOSAGE FORMS,(3 DOSAGE FORMS, 4 IN 1 D)  INTRAVENOUS DRIP
     Route: 041
     Dates: start: 20130211, end: 20130228

REACTIONS (1)
  - Rash maculo-papular [None]
